FAERS Safety Report 25564808 (Version 1)
Quarter: 2025Q3

REPORT INFORMATION
  Report Type: Spontaneous
  Country: US (occurrence: US)
  Receive Date: 20250716
  Receipt Date: 20250716
  Transmission Date: 20251020
  Serious: Yes (Other)
  Sender: NOVARTIS
  Company Number: US-002147023-NVSC2025US112632

PATIENT
  Age: 35 Year
  Sex: Female

DRUGS (2)
  1. COSENTYX [Suspect]
     Active Substance: SECUKINUMAB
     Indication: Psoriasis
     Route: 065
  2. COSENTYX [Suspect]
     Active Substance: SECUKINUMAB
     Indication: Psoriatic arthropathy

REACTIONS (5)
  - Psoriatic arthropathy [Unknown]
  - Symptom recurrence [Unknown]
  - Psoriasis [Unknown]
  - Skin exfoliation [Unknown]
  - Ear discomfort [Unknown]

NARRATIVE: CASE EVENT DATE: 20240101
